FAERS Safety Report 20108540 (Version 4)
Quarter: 2022Q1

REPORT INFORMATION
  Report Type: Report from Study
  Country: US (occurrence: US)
  Receive Date: 20211124
  Receipt Date: 20220215
  Transmission Date: 20220423
  Serious: No
  Sender: FDA-Public Use
  Company Number: US-NOVARTISTESTPH-NVSC2021US267886

PATIENT
  Age: 83 Year
  Sex: Male

DRUGS (3)
  1. ENTRESTO [Suspect]
     Active Substance: SACUBITRIL\VALSARTAN
     Indication: Product used for unknown indication
     Dosage: 50 MG, BID(24/26 MG)
     Route: 048
     Dates: start: 20211120
  2. ENTRESTO [Suspect]
     Active Substance: SACUBITRIL\VALSARTAN
     Dosage: 100 MG, BID (49/51 MG)
     Route: 048
     Dates: start: 20211220
  3. ENTRESTO [Suspect]
     Active Substance: SACUBITRIL\VALSARTAN
     Dosage: 50 MG (24/26 MG)
     Route: 065

REACTIONS (10)
  - Insomnia [Recovered/Resolved with Sequelae]
  - Dyspnoea [Unknown]
  - Fatigue [Not Recovered/Not Resolved]
  - Eye swelling [Unknown]
  - Lacrimation increased [Unknown]
  - Swollen tongue [Unknown]
  - Decreased appetite [Unknown]
  - Attention deficit hyperactivity disorder [Unknown]
  - Wrong technique in product usage process [Unknown]
  - Product dispensing error [Unknown]

NARRATIVE: CASE EVENT DATE: 20211120
